FAERS Safety Report 9442511 (Version 1)
Quarter: 2013Q3

REPORT INFORMATION
  Report Type: Spontaneous
  Country: US (occurrence: None)
  Receive Date: 20130805
  Receipt Date: 20130805
  Transmission Date: 20140515
  Serious: Yes (Hospitalization)
  Sender: FDA-Public Use
  Company Number: None

PATIENT
  Age: 49 Year
  Sex: Female
  Weight: 92 kg

DRUGS (2)
  1. INFLIXIMAB [Suspect]
     Indication: SARCOIDOSIS
     Dosage: 675 MG OTHER IV
     Route: 042
     Dates: start: 20081015, end: 20090506
  2. INFLIXIMAB [Suspect]
     Indication: ARTHRITIS
     Dosage: 675 MG OTHER IV
     Route: 042
     Dates: start: 20081015, end: 20090506

REACTIONS (6)
  - Aspartate aminotransferase increased [None]
  - Alanine aminotransferase increased [None]
  - Hepatic function abnormal [None]
  - Abdominal discomfort [None]
  - Nausea [None]
  - Vomiting [None]
